FAERS Safety Report 9690310 (Version 1)
Quarter: 2013Q4

REPORT INFORMATION
  Report Type: Spontaneous
  Country: DE (occurrence: DE)
  Receive Date: 20131115
  Receipt Date: 20131115
  Transmission Date: 20140711
  Serious: Yes (Other)
  Sender: FDA-Public Use
  Company Number: DE-DRREDDYS-GER/GER/13/0035565

PATIENT
  Age: 0 Year
  Sex: Male
  Weight: 3.48 kg

DRUGS (4)
  1. CITALOPRAM [Suspect]
     Indication: PRODUCT USED FOR UNKNOWN INDICATION
     Route: 064
     Dates: start: 20120131, end: 20121030
  2. AZITHROMYCIN [Suspect]
     Indication: PRODUCT USED FOR UNKNOWN INDICATION
     Route: 064
  3. GYNVITAL GRAVIDA [Concomitant]
     Indication: PRODUCT USED FOR UNKNOWN INDICATION
     Route: 064
     Dates: start: 20120305, end: 20121030
  4. SPIROPENT [Concomitant]
     Indication: PRODUCT USED FOR UNKNOWN INDICATION
     Route: 064
     Dates: start: 20120922, end: 20121009

REACTIONS (4)
  - Hyperbilirubinaemia neonatal [Recovered/Resolved]
  - Convulsion neonatal [Unknown]
  - Haemolytic anaemia [Recovered/Resolved]
  - Foetal exposure during pregnancy [Unknown]
